FAERS Safety Report 5941597-X (Version None)
Quarter: 2008Q4

REPORT INFORMATION
  Report Type: 
  Country: None (occurrence: None)
  Receive Date: 20081104
  Receipt Date: 20081104
  Transmission Date: 20090506
  Serious: No
  Sender: FDA-Public Use
  Company Number: None

PATIENT
  Age: 60 Year
  Sex: Male
  Weight: 127.46 kg

DRUGS (1)
  1. TERBINAFINE HCL [Suspect]
     Indication: INFECTION
     Dosage: 250 MG EVERY DAY PO
     Route: 048
     Dates: start: 20080911, end: 20080921

REACTIONS (2)
  - PRURITUS [None]
  - SWELLING FACE [None]
